FAERS Safety Report 15159221 (Version 2)
Quarter: 2018Q3

REPORT INFORMATION
  Report Type: Report from Study
  Country: FR (occurrence: FR)
  Receive Date: 20180718
  Receipt Date: 20180810
  Transmission Date: 20181010
  Serious: Yes (Death, Life-Threatening, Hospitalization)
  Sender: FDA-Public Use
  Company Number: FR-PFIZER INC-2018280765

PATIENT
  Age: 66 Year
  Sex: Male
  Weight: 115 kg

DRUGS (11)
  1. LEVOTHYROX [Concomitant]
     Active Substance: LEVOTHYROXINE
     Indication: THYROIDECTOMY
     Dosage: UNK
     Dates: start: 201411
  2. BISOPROLOL [Concomitant]
     Active Substance: BISOPROLOL
     Indication: CARDIAC DYSFUNCTION
     Dosage: UNK
     Dates: start: 20170804
  3. ALDACTONE [Concomitant]
     Active Substance: SPIRONOLACTONE
     Indication: CARDIAC DYSFUNCTION
     Dosage: UNK
     Dates: start: 20180403
  4. DEXERYL /00557601/ [Concomitant]
     Active Substance: CHLORPHENIRAMINE MALEATE\DEXTROMETHORPHAN HYDROBROMIDE\GUAIFENESIN\PHENYLEPHRINE HYDROCHLORIDE
     Indication: SKIN IRRITATION
     Dosage: UNK
     Dates: start: 20170609
  5. AVELUMAB [Suspect]
     Active Substance: AVELUMAB
     Indication: RENAL CELL CARCINOMA
     Dosage: 1160 MG, CYCLIC (EVERY 2 WEEKS)
     Route: 042
     Dates: start: 20170609, end: 20180629
  6. AXITINIB [Suspect]
     Active Substance: AXITINIB
     Indication: RENAL CELL CARCINOMA
     Dosage: 3 MG, 2X/DAY (4 WEEKS ON, 2 WEEKS OFF)
     Dates: start: 20170609, end: 20180706
  7. DECTANCYL [Concomitant]
     Active Substance: DEXAMETHASONE
     Indication: ADRENALECTOMY
     Dosage: UNK
     Dates: start: 201712
  8. STAGID [Concomitant]
     Active Substance: METFORMIN PAMOATE
     Indication: DIABETES MELLITUS
     Dosage: UNK
  9. KARDEGIC [Concomitant]
     Active Substance: ASPIRIN DL-LYSINE
     Indication: POLYCYTHAEMIA
     Dosage: UNK
     Dates: start: 201705
  10. HYDROCORTISONE. [Concomitant]
     Active Substance: HYDROCORTISONE
     Indication: ADRENALECTOMY
     Dosage: UNK
     Dates: start: 201712
  11. TRIATEC /00885601/ [Concomitant]
     Active Substance: RAMIPRIL
     Indication: CARDIAC DYSFUNCTION
     Dosage: UNK
     Dates: start: 20170804

REACTIONS (2)
  - Pancreatitis [Recovered/Resolved]
  - Pancreatitis [Fatal]

NARRATIVE: CASE EVENT DATE: 20180709
